FAERS Safety Report 8514076-3 (Version None)
Quarter: 2012Q3

REPORT INFORMATION
  Report Type: 
  Country: None (occurrence: None)
  Receive Date: 20120717
  Receipt Date: 20120702
  Transmission Date: 20120928
  Serious: Yes (Death, Other)
  Sender: FDA-Public Use
  Company Number: US-009507513-2012SP030299

PATIENT

DRUGS (2)
  1. COUMADIN [Suspect]
  2. TICE BCG [Suspect]
     Indication: BLADDER CANCER
     Dosage: 6 TREATMENTS IN EACH ROUND
     Route: 043

REACTIONS (5)
  - TREATMENT FAILURE [None]
  - DRUG INEFFECTIVE [None]
  - CEREBROVASCULAR ACCIDENT [None]
  - APHASIA [None]
  - NEOPLASM MALIGNANT [None]
